FAERS Safety Report 8073952-9 (Version None)
Quarter: 2012Q1

REPORT INFORMATION
  Report Type: 
  Country: None (occurrence: None)
  Receive Date: 20120119
  Receipt Date: 20120110
  Transmission Date: 20120608
  Serious: Yes (Hospitalization, Other)
  Sender: FDA-Public Use
  Company Number: AUR-APL-2012-00471

PATIENT
  Age: 73 Year
  Sex: Female

DRUGS (3)
  1. PAROXETINE HCL [Suspect]
     Indication: PRODUCT USED FOR UNKNOWN INDICATION
  2. ATORVASTATIN [Concomitant]
  3. ALPRAZOLAM [Concomitant]

REACTIONS (6)
  - PAPULE [None]
  - RASH ERYTHEMATOUS [None]
  - PHOTOSENSITIVITY REACTION [None]
  - GRANULOMA ANNULARE [None]
  - RASH PRURITIC [None]
  - ANTINUCLEAR ANTIBODY POSITIVE [None]
